FAERS Safety Report 14201961 (Version 1)
Quarter: 2017Q4

REPORT INFORMATION
  Report Type: Report from Study
  Country: US (occurrence: BR)
  Receive Date: 20171117
  Receipt Date: 20171117
  Transmission Date: 20180321
  Serious: Yes (Hospitalization, Other)
  Sender: FDA-Public Use
  Company Number: US-SUNOVION-2017SUN004973

PATIENT
  Sex: Male
  Weight: 62 kg

DRUGS (6)
  1. LOSARTAN. [Suspect]
     Active Substance: LOSARTAN
     Indication: BLOOD PRESSURE ABNORMAL
     Dosage: 50 + 12.5
     Route: 065
  2. INDACATEROL AND GLYCOPYRROLATE [Suspect]
     Active Substance: GLYCOPYRROLATE\INDACATEROL MALEATE
     Indication: ASTHMA
     Dosage: 1 DF(GLYCOPYRRONIUM, BROMIDE 50 UG/ INDACATEROL 110 UG, QD
     Route: 055
     Dates: start: 201705
  3. MIFLONIDE [Suspect]
     Active Substance: BUDESONIDE
     Indication: PRODUCT USED FOR UNKNOWN INDICATION
     Dosage: UNK UNK, BID
     Route: 065
  4. INDACATEROL AND GLYCOPYRROLATE [Suspect]
     Active Substance: GLYCOPYRROLATE\INDACATEROL MALEATE
     Indication: LUNG DISORDER
     Dosage: 1 DF(GLYCOPYRRONIUM 50 UG, BROMIDE 50 UG/ INDACATEROL 110 UG, QD
     Route: 055
  5. BEROTEC [Concomitant]
     Active Substance: FENOTEROL HYDROBROMIDE
  6. INDACATEROL AND GLYCOPYRROLATE [Suspect]
     Active Substance: GLYCOPYRROLATE\INDACATEROL MALEATE
     Indication: CHRONIC OBSTRUCTIVE PULMONARY DISEASE
     Dosage: 1 DF(GLYCOPYRRONIUM, BROMIDE 50 UG/ INDACATEROL, QD
     Route: 055
     Dates: start: 2016

REACTIONS (14)
  - Dyspnoea [Unknown]
  - Wheezing [Recovered/Resolved]
  - Asthmatic crisis [Unknown]
  - Dizziness [Unknown]
  - Coma [Unknown]
  - Asphyxia [Unknown]
  - Dementia Alzheimer^s type [Unknown]
  - Memory impairment [Unknown]
  - Malaise [Unknown]
  - Insomnia [Recovered/Resolved]
  - Body height increased [Unknown]
  - Weight increased [Unknown]
  - Blood pressure decreased [Unknown]
  - Product use in unapproved indication [Unknown]
